FAERS Safety Report 21022146 (Version 1)
Quarter: 2022Q2

REPORT INFORMATION
  Report Type: Spontaneous
  Country: US (occurrence: None)
  Receive Date: 20220628
  Receipt Date: 20220628
  Transmission Date: 20220721
  Serious: Yes (Other)
  Sender: FDA-Public Use
  Company Number: None

PATIENT
  Age: 23 Year
  Sex: Female
  Weight: 66.6 kg

DRUGS (4)
  1. DEXTROAMPHETAMINE [Suspect]
     Active Substance: DEXTROAMPHETAMINE
     Indication: Attention deficit hyperactivity disorder
     Dosage: FREQUENCY : TWICE A DAY;?
     Route: 048
  2. Effexor XR 225 mg [Concomitant]
  3. Adderall mf. Camber 5mg [Concomitant]
  4. Adderall mf. Camber 10mg [Concomitant]

REACTIONS (10)
  - Product substitution issue [None]
  - Fatigue [None]
  - Lethargy [None]
  - Amnesia [None]
  - Dizziness [None]
  - Headache [None]
  - Abdominal pain upper [None]
  - Abdominal distension [None]
  - Affect lability [None]
  - Anxiety [None]

NARRATIVE: CASE EVENT DATE: 20220627
